FAERS Safety Report 22218830 (Version 12)
Quarter: 2024Q2

REPORT INFORMATION
  Report Type: Spontaneous
  Country: US (occurrence: US)
  Receive Date: 20230417
  Receipt Date: 20240405
  Transmission Date: 20240716
  Serious: Yes (Other)
  Sender: FDA-Public Use
  Company Number: US-BRISTOL-MYERS SQUIBB COMPANY-2023-050859

PATIENT
  Age: 94 Year
  Sex: Female

DRUGS (4)
  1. POMALYST [Suspect]
     Active Substance: POMALIDOMIDE
     Indication: Plasma cell myeloma
     Dosage: TAKE 1 CAPSULE BY MOUTH EVERY
     Route: 048
     Dates: end: 20230323
  2. POMALYST [Suspect]
     Active Substance: POMALIDOMIDE
     Dosage: 1 CAPSULE BY MOUTH EVERY MORNING FOR 2 WEEKS ON THEN 1 WEEK OFF
     Route: 048
     Dates: end: 20231013
  3. POMALYST [Suspect]
     Active Substance: POMALIDOMIDE
     Dosage: 1 CAPSULE BY MOUTH EVERY MORNING FOR 2 WEEKS ON THEN 1 WEEK OFF
     Route: 048
     Dates: start: 20230325
  4. POMALYST [Suspect]
     Active Substance: POMALIDOMIDE
     Dosage: TAKE 1 CAPSULE BY MOUTH EVERY DAY IN THE MORNING FOR 3 WEEKS ON AND 1 WEEK OFF
     Route: 048

REACTIONS (19)
  - Fatigue [Recovering/Resolving]
  - Dyspnoea [Recovering/Resolving]
  - Insomnia [Unknown]
  - Neuropathy peripheral [Not Recovered/Not Resolved]
  - Off label use [Unknown]
  - Pain [Not Recovered/Not Resolved]
  - Macule [Not Recovered/Not Resolved]
  - Plantar erythema [Not Recovered/Not Resolved]
  - Peripheral swelling [Not Recovered/Not Resolved]
  - Weight increased [Recovering/Resolving]
  - Nausea [Recovering/Resolving]
  - Constipation [Recovering/Resolving]
  - Laboratory test abnormal [Recovered/Resolved]
  - Pain in extremity [Recovering/Resolving]
  - Product prescribing error [Unknown]
  - Thrombosis [Not Recovered/Not Resolved]
  - Dental caries [Not Recovered/Not Resolved]
  - Oedema peripheral [Not Recovered/Not Resolved]
  - Plasma cell myeloma [Unknown]
